FAERS Safety Report 6675548-X (Version None)
Quarter: 2010Q2

REPORT INFORMATION
  Report Type: 
  Country: None (occurrence: None)
  Receive Date: 20100409
  Receipt Date: 20100329
  Transmission Date: 20101027
  Serious: Yes (Other)
  Sender: FDA-Public Use
  Company Number: PHEH2010US01922

PATIENT
  Sex: Female
  Weight: 97 kg

DRUGS (8)
  1. RECLAST [Suspect]
     Indication: OSTEOPOROSIS
     Dosage: 5 MG ANNUALLY
     Route: 042
     Dates: start: 20090521
  2. FOSAMAX [Concomitant]
  3. EVISTA [Concomitant]
     Dosage: UNK
  4. COUMADIN [Concomitant]
     Dosage: 5 MG
     Dates: start: 20100109
  5. DIGOXIN [Concomitant]
     Indication: ATRIAL FIBRILLATION
     Dosage: 250 MG, 1 TAB DAILY
     Dates: start: 20100109
  6. LOVASTATIN [Concomitant]
     Dosage: 40 MG, 1 TAB DAILY
  7. ZOLOFT [Concomitant]
     Dosage: 50 MG, 1 TAB DAILY
  8. HYDROCHLOROTHIAZIDE [Concomitant]
     Dosage: 12.5 MG, 1 TAB DAILY

REACTIONS (16)
  - AORTIC VALVE INCOMPETENCE [None]
  - ATELECTASIS [None]
  - ATRIAL FIBRILLATION [None]
  - BODY TEMPERATURE INCREASED [None]
  - BONE PAIN [None]
  - CARDIAC FAILURE CONGESTIVE [None]
  - CARDIOMEGALY [None]
  - CHEST PAIN [None]
  - DYSPNOEA [None]
  - HEART VALVE INCOMPETENCE [None]
  - HYPERTENSION [None]
  - INFLUENZA LIKE ILLNESS [None]
  - MALAISE [None]
  - MITRAL VALVE INCOMPETENCE [None]
  - PLEURAL EFFUSION [None]
  - TRICUSPID VALVE INCOMPETENCE [None]
